FAERS Safety Report 20632597 (Version 1)
Quarter: 2022Q1

REPORT INFORMATION
  Report Type: Report from Study
  Country: TW (occurrence: TW)
  Receive Date: 20220324
  Receipt Date: 20220324
  Transmission Date: 20220423
  Serious: No
  Sender: FDA-Public Use
  Company Number: TW-KARYOPHARM-2022KPT000337

PATIENT

DRUGS (5)
  1. SELINEXOR [Suspect]
     Active Substance: SELINEXOR
     Indication: Diffuse large B-cell lymphoma
     Dosage: UNK
     Route: 048
     Dates: start: 20220302
  2. BARACLUDE [Concomitant]
     Active Substance: ENTECAVIR
     Indication: Viral hepatitis carrier
     Dosage: 0.5 MG, QD
     Route: 065
  3. GLUCOBAY [Concomitant]
     Active Substance: ACARBOSE
     Dosage: 100 MG, BID
     Route: 065
  4. GLICLAZIDE [Concomitant]
     Active Substance: GLICLAZIDE
     Dosage: 60 MG, QD
     Route: 065
  5. INSULIN ASPART [Concomitant]
     Active Substance: INSULIN ASPART
     Dosage: 35 IU, BID BEFORE MEALS

REACTIONS (3)
  - Fatigue [Unknown]
  - Thrombocytopenia [Unknown]
  - Hyponatraemia [Unknown]

NARRATIVE: CASE EVENT DATE: 20220301
